FAERS Safety Report 6205922-7 (Version None)
Quarter: 2009Q2

REPORT INFORMATION
  Report Type: 
  Country: None (occurrence: None)
  Receive Date: 20090527
  Receipt Date: 20090512
  Transmission Date: 20091009
  Serious: No
  Sender: FDA-Public Use
  Company Number: US-ABBOTT-09P-163-0573145-00

PATIENT
  Sex: Female
  Weight: 65.376 kg

DRUGS (4)
  1. SIMCOR [Suspect]
     Indication: BLOOD CHOLESTEROL INCREASED
     Dosage: UNSURE OF STRENGTH
     Route: 048
  2. NEXIUM [Concomitant]
     Indication: GASTROOESOPHAGEAL REFLUX DISEASE
     Route: 048
  3. LISINOPRIL AND HYDROCHLOROTHIAZIDE [Concomitant]
     Indication: HYPERTENSION
     Dosage: CAN'T RECALL STRENGTH
     Route: 048
  4. BENEFIBER [Concomitant]
     Indication: GASTROINTESTINAL DISORDER
     Route: 048

REACTIONS (5)
  - FLUSHING [None]
  - HAEMORRHAGE [None]
  - JOINT SWELLING [None]
  - PRURITUS [None]
  - RASH [None]
